FAERS Safety Report 11718334 (Version 1)
Quarter: 2015Q4

REPORT INFORMATION
  Report Type: Spontaneous
  Country: US (occurrence: None)
  Receive Date: 20151109
  Receipt Date: 20151109
  Transmission Date: 20160304
  Serious: Yes (Life-Threatening, Hospitalization)
  Sender: FDA-Public Use
  Company Number: None

PATIENT
  Age: 56 Year
  Sex: Male
  Weight: 93.9 kg

DRUGS (9)
  1. LEVEMIR [Concomitant]
     Active Substance: INSULIN DETEMIR
  2. LOSARTAN-HCZ [Concomitant]
  3. FLUCONAZOLE. [Concomitant]
     Active Substance: FLUCONAZOLE
  4. LACTOBACCILUS [Concomitant]
  5. INVOKANA [Suspect]
     Active Substance: CANAGLIFLOZIN
     Indication: DIABETES MELLITUS INADEQUATE CONTROL
     Dosage: ~ 3 MONTHS, STOPPED 1 DAY PRE-OP
     Route: 048
  6. METFORMIN [Suspect]
     Active Substance: METFORMIN HYDROCHLORIDE
  7. NORVASC [Concomitant]
     Active Substance: AMLODIPINE BESYLATE
  8. PIPERACILLIN AND TAZOBACTAM [Concomitant]
     Active Substance: PIPERACILLIN SODIUM\TAZOBACTAM SODIUM
  9. FAMOTIDINE. [Concomitant]
     Active Substance: FAMOTIDINE

REACTIONS (3)
  - Procedural complication [None]
  - Ketoacidosis [None]
  - Cyst rupture [None]

NARRATIVE: CASE EVENT DATE: 20151107
